FAERS Safety Report 8523974 (Version 2)
Quarter: 2013Q2

REPORT INFORMATION
  Report Type: Report from Study
  Country: CA (occurrence: CA)
  Receive Date: 20120420
  Receipt Date: 20130416
  Transmission Date: 20140414
  Serious: Yes (Other)
  Sender: FDA-Public Use
  Company Number: CA-ROCHE-1059535

PATIENT
  Age: 59 Year
  Sex: Female

DRUGS (10)
  1. RITUXAN [Suspect]
     Indication: RHEUMATOID ARTHRITIS
     Route: 042
     Dates: start: 20120404
  2. BENADRYL [Concomitant]
     Dosage: FOR 2 HOURS
     Route: 048
  3. METHOTREXATE [Concomitant]
     Route: 058
  4. PREDNISONE [Concomitant]
  5. VALSARTAN [Concomitant]
  6. HYDROCHLOROTHIAZIDE [Concomitant]
  7. HEPARIN [Concomitant]
     Route: 065
     Dates: end: 20120418
  8. DIPHENHYDRAMINE HCL [Concomitant]
     Route: 065
     Dates: start: 20120404, end: 20120404
  9. ACETAMINOPHEN [Concomitant]
     Route: 065
     Dates: start: 20120404, end: 20120404
  10. METHYLPREDNISOLONE [Concomitant]
     Route: 042
     Dates: start: 20120404, end: 20120404

REACTIONS (3)
  - Thrombosis [Unknown]
  - Rash [Unknown]
  - Infusion related reaction [Recovered/Resolved]
